FAERS Safety Report 4472092-5 (Version None)
Quarter: 2004Q4

REPORT INFORMATION
  Report Type: 
  Country: None (occurrence: None)
  Receive Date: 20041008
  Receipt Date: 20040929
  Transmission Date: 20050328
  Serious: Yes (Other)
  Sender: FDA-Public Use
  Company Number: 2004062323

PATIENT
  Sex: Female
  Weight: 157.3982 kg

DRUGS (12)
  1. NEURONTIN [Suspect]
     Indication: BACK DISORDER
     Dosage: 6400 MG, ORAL
     Route: 048
     Dates: end: 20040801
  2. NEURONTIN [Suspect]
     Indication: FIBROMYALGIA
     Dosage: 6400 MG, ORAL
     Route: 048
     Dates: end: 20040801
  3. NEURONTIN [Suspect]
     Indication: NEURALGIA
     Dosage: 6400 MG, ORAL
     Route: 048
     Dates: end: 20040801
  4. FENTANYL [Concomitant]
  5. BENZOCAINE (BENZOCAINE) [Concomitant]
  6. CLONIDINE [Concomitant]
  7. CLOPIDOGREL SUFLATE (CLOPIDOGREL SULFATE) [Concomitant]
  8. TEMAZEPAM [Concomitant]
  9. TRAZODONE HCL [Concomitant]
  10. IMIPRAMINE [Concomitant]
  11. LEVOTHYROXINE SODIUM [Concomitant]
  12. RISPERDAL [Concomitant]

REACTIONS (4)
  - ABDOMINAL PAIN [None]
  - DRUG WITHDRAWAL SYNDROME [None]
  - MUSCLE CRAMP [None]
  - TREATMENT NONCOMPLIANCE [None]
